FAERS Safety Report 21482221 (Version 4)
Quarter: 2022Q4

REPORT INFORMATION
  Report Type: Spontaneous
  Country: SE (occurrence: SE)
  Receive Date: 20221020
  Receipt Date: 20221230
  Transmission Date: 20230113
  Serious: Yes (Hospitalization, Other)
  Sender: FDA-Public Use
  Company Number: SE-NOVARTISPH-NVSC2022SE231670

PATIENT
  Sex: Female

DRUGS (24)
  1. OLANZAPINE [Suspect]
     Active Substance: OLANZAPINE
     Indication: Bipolar disorder
     Dosage: 15 MG, QD (15 MILLIGRAM, QD (1 PIECE EVERY EVENING)
     Route: 065
     Dates: start: 2011
  2. OLANZAPINE [Suspect]
     Active Substance: OLANZAPINE
     Indication: Psychotic disorder
     Dosage: 10 MG
     Route: 065
     Dates: start: 2021, end: 202111
  3. OLANZAPINE [Suspect]
     Active Substance: OLANZAPINE
     Dosage: 15 MG (DOSE LOWERED FROM 15 MG TO 10 MG, BUT WITHDRAWN IN NOV 2021 AFTER SECOND ABSENCE ATTACKS)
     Route: 065
     Dates: start: 2021, end: 202111
  4. OLANZAPINE [Suspect]
     Active Substance: OLANZAPINE
     Dosage: 1200 MG (1200 MILLIGRAM)
     Route: 065
  5. OLANZAPINE [Suspect]
     Active Substance: OLANZAPINE
     Dosage: 15 MG (15 MILLIGRAM)
     Route: 065
  6. OLANZAPINE [Suspect]
     Active Substance: OLANZAPINE
     Dosage: 10 MG (10 MILLIGRAM)
     Route: 065
     Dates: end: 202111
  7. OLANZAPINE [Suspect]
     Active Substance: OLANZAPINE
     Dosage: 375 MG (375 MILLIGRAM)
     Route: 065
     Dates: start: 202204
  8. CLOZAPINE [Suspect]
     Active Substance: CLOZAPINE
     Indication: Psychotic disorder
     Dosage: 400 MG (FROM APRIL 2022 LOWERING THE DOSE BY 12.5 MG PER WEEK FROM 400 MG TO 250 MG IN OCT 2022)
     Route: 065
     Dates: start: 2007
  9. CLOZAPINE [Suspect]
     Active Substance: CLOZAPINE
     Indication: Bipolar disorder
     Dosage: 400 MG, QD (100 MILLIGRAM, QID)
     Route: 065
     Dates: start: 2007
  10. CLOZAPINE [Suspect]
     Active Substance: CLOZAPINE
     Dosage: 375 MG (375 MILLIGRAM)
     Route: 065
     Dates: start: 20220512
  11. CLOZAPINE [Suspect]
     Active Substance: CLOZAPINE
     Dosage: 300 MG (375 MILLIGRAM)
     Route: 065
     Dates: start: 20220817
  12. CLOZAPINE [Suspect]
     Active Substance: CLOZAPINE
     Dosage: 250 MG (250 MILLIGRAM)
     Route: 065
  13. CLOZAPINE [Suspect]
     Active Substance: CLOZAPINE
     Dosage: 375 MG (375 MILLIGRAM)
     Route: 065
  14. CLOZAPINE [Suspect]
     Active Substance: CLOZAPINE
     Dosage: 300 MG (300 MILLIGRAM)
     Route: 065
  15. ABSENOR [Concomitant]
     Indication: Bipolar disorder
     Dosage: 1200 MG (1200 MG DOSE INCREASED FROM 1200 MG TO 1500 MG (IN MAR 2022)
     Route: 065
     Dates: start: 2011
  16. ABSENOR [Concomitant]
     Dosage: 1500 MG (1500 MILLIGRAM)
     Route: 065
     Dates: start: 201103
  17. ABSENOR [Concomitant]
     Dosage: UNK
     Route: 065
     Dates: start: 2011
  18. VALPROIC ACID [Concomitant]
     Active Substance: VALPROIC ACID
     Indication: Bipolar disorder
     Dosage: 1200 MG (DOSE INCREASED FROM 1200 MG TO 1500 MG (IN MAR 2022))
     Route: 065
     Dates: start: 2011
  19. VALPROIC ACID [Concomitant]
     Active Substance: VALPROIC ACID
     Dosage: 1500 MG (1500 MILLIGRAM)
     Route: 065
     Dates: start: 201103
  20. VALPROIC ACID [Concomitant]
     Active Substance: VALPROIC ACID
     Dosage: 15 MG (15 MILLIGRAM)
     Route: 065
     Dates: start: 2011
  21. VALPROIC ACID [Concomitant]
     Active Substance: VALPROIC ACID
     Dosage: 1200 MG (1200 MILLIGRAM)
     Route: 065
  22. VALPROIC ACID [Concomitant]
     Active Substance: VALPROIC ACID
     Dosage: UNK
     Route: 065
     Dates: start: 2011
  23. LITHIUM SULFATE [Concomitant]
     Active Substance: LITHIUM SULFATE
     Indication: Product used for unknown indication
     Dosage: 3 DOSAGE FORM (3 PCS FOR LITHIONIT)
     Route: 065
  24. LITHIUM SULFATE [Concomitant]
     Active Substance: LITHIUM SULFATE
     Dosage: UNK (3 PCS)
     Route: 065

REACTIONS (5)
  - Seizure [Recovered/Resolved]
  - Petit mal epilepsy [Unknown]
  - Antipsychotic drug level increased [Unknown]
  - Wrong technique in product usage process [Unknown]
  - Intentional product misuse [Unknown]

NARRATIVE: CASE EVENT DATE: 20210301
